FAERS Safety Report 25629739 (Version 1)
Quarter: 2025Q3

REPORT INFORMATION
  Report Type: Spontaneous
  Country: GB (occurrence: GB)
  Receive Date: 20250731
  Receipt Date: 20250731
  Transmission Date: 20251020
  Serious: Yes (Other)
  Sender: ESPERION THERAPEUTICS
  Company Number: None

PATIENT
  Age: 62 Year
  Sex: Female
  Weight: 71 kg

DRUGS (3)
  1. BEMPEDOIC ACID\EZETIMIBE [Suspect]
     Active Substance: BEMPEDOIC ACID\EZETIMIBE
     Indication: Adverse drug reaction
     Dosage: 1 DOSAGE FORM, QD (180/10 MG, ONE TO BE TAKEN ONCE DAILY)
     Route: 065
     Dates: start: 20250424, end: 20250508
  2. OMEPRAZOLE [Concomitant]
     Active Substance: OMEPRAZOLE
     Indication: Adverse drug reaction
     Dosage: 1 DOSAGE FORM, BID (ONE TO BE TAKEN TWICE DAILY)
     Route: 065
     Dates: start: 20250401
  3. EZETIMIBE [Concomitant]
     Active Substance: EZETIMIBE
     Indication: Adverse drug reaction
     Dosage: 1 DOSAGE FORM, QD (ONE TO BE TAKEN EACH DAY)
     Route: 065
     Dates: start: 20250508

REACTIONS (7)
  - Myalgia [Recovering/Resolving]
  - Eye irritation [Unknown]
  - Hangover [Unknown]
  - Adverse drug reaction [Recovering/Resolving]
  - Rhinorrhoea [Recovered/Resolved]
  - Oropharyngeal pain [Recovering/Resolving]
  - Headache [Recovering/Resolving]

NARRATIVE: CASE EVENT DATE: 20250502
